FAERS Safety Report 10548892 (Version 1)
Quarter: 2014Q4

REPORT INFORMATION
  Report Type: Spontaneous
  Country: None (occurrence: None)
  Receive Date: 20141027
  Receipt Date: 20141027
  Transmission Date: 20150529
  Serious: Yes (Life-Threatening, Hospitalization)
  Sender: FDA-Public Use
  Company Number: None

PATIENT
  Age: 68 Year
  Sex: Female
  Weight: 61.69 kg

DRUGS (1)
  1. ERBITUX [Suspect]
     Active Substance: CETUXIMAB
     Indication: SQUAMOUS CELL CARCINOMA
     Dosage: 656 MG (400 MG/M2)  PRN/AS NEEDED  INTRAVENOUS
     Route: 042
     Dates: start: 20140919, end: 20140919

REACTIONS (2)
  - Nausea [None]
  - Muscle tightness [None]

NARRATIVE: CASE EVENT DATE: 20140919
